FAERS Safety Report 21643697 (Version 1)
Quarter: 2022Q4

REPORT INFORMATION
  Report Type: Spontaneous
  Country: CN (occurrence: CN)
  Receive Date: 20221125
  Receipt Date: 20221125
  Transmission Date: 20230113
  Serious: Yes (Other)
  Sender: FDA-Public Use
  Company Number: CN-PFIZER INC-PV202200106542

PATIENT
  Age: 75 Year
  Sex: Male
  Weight: 85 kg

DRUGS (7)
  1. VORICONAZOLE [Interacting]
     Active Substance: VORICONAZOLE
     Indication: Bronchopulmonary aspergillosis
     Dosage: 200 MG, 1X/12 HOURS
     Route: 048
     Dates: start: 202112
  2. VORICONAZOLE [Interacting]
     Active Substance: VORICONAZOLE
     Dosage: 250 MG, 1X/12 HOURS
     Route: 048
  3. VORICONAZOLE [Interacting]
     Active Substance: VORICONAZOLE
     Dosage: 300 MG, 1X/12 HOURS
     Route: 048
     Dates: start: 20220207
  4. VORICONAZOLE [Interacting]
     Active Substance: VORICONAZOLE
     Dosage: 275 MG, 1X/12 HOURS
     Route: 048
     Dates: start: 20220223
  5. LUMAKRAS [Interacting]
     Active Substance: SOTORASIB
     Indication: Targeted cancer therapy
     Dosage: 360 MG, 1X/DAY
     Route: 048
  6. PIPERACILLIN AND TAZOBACTAM [Concomitant]
     Active Substance: PIPERACILLIN SODIUM\TAZOBACTAM SODIUM
     Indication: Anti-infective therapy
     Dosage: 4.5 G, 1X/8 HOURS
     Route: 041
  7. METHYLPREDNISOLONE [Concomitant]
     Active Substance: METHYLPREDNISOLONE
     Indication: Renal injury
     Dosage: 6 MG, 1X/DAY
     Route: 048

REACTIONS (3)
  - Drug interaction [Unknown]
  - Drug level below therapeutic [Unknown]
  - Drug ineffective [Unknown]
